FAERS Safety Report 18515755 (Version 2)
Quarter: 2020Q4

REPORT INFORMATION
  Report Type: Report from Study
  Country: US (occurrence: US)
  Receive Date: 20201118
  Receipt Date: 20201127
  Transmission Date: 20210114
  Serious: No
  Sender: FDA-Public Use
  Company Number: US-SA-2020SA319877

PATIENT

DRUGS (2)
  1. DUPILUMAB [Suspect]
     Active Substance: DUPILUMAB
     Dosage: 300 MG (MAINTENANCE DOSE), QOW
     Route: 058
     Dates: start: 202011
  2. DUPILUMAB [Suspect]
     Active Substance: DUPILUMAB
     Indication: DERMATITIS ATOPIC
     Dosage: 600 MG (LOADING DOSE)
     Route: 058
     Dates: start: 20201105, end: 202011

REACTIONS (1)
  - Eczema [Unknown]

NARRATIVE: CASE EVENT DATE: 202011
